FAERS Safety Report 6140194-3 (Version None)
Quarter: 2009Q2

REPORT INFORMATION
  Report Type: 
  Country: None (occurrence: None)
  Receive Date: 20090401
  Receipt Date: 20090323
  Transmission Date: 20091009
  Serious: No
  Sender: FDA-Public Use
  Company Number: US-B.I. PHARMACEUTICALS,INC./RIDGEFIELD-2009-BP-03682BP

PATIENT
  Sex: Male

DRUGS (2)
  1. COMBIVENT [Suspect]
     Indication: BRONCHITIS
     Route: 055
     Dates: start: 20090101
  2. ATIVAN [Suspect]

REACTIONS (5)
  - DYSKINESIA [None]
  - INJECTION SITE PAIN [None]
  - MEDICATION ERROR [None]
  - TREMOR [None]
  - URTICARIA [None]
